FAERS Safety Report 6967276-8 (Version None)
Quarter: 2010Q3

REPORT INFORMATION
  Report Type: 
  Country: None (occurrence: None)
  Receive Date: 20100907
  Receipt Date: 20100824
  Transmission Date: 20110219
  Serious: Yes (Death, Hospitalization, Other)
  Sender: FDA-Public Use
  Company Number: JP-JNJFOC-20100703507

PATIENT
  Sex: Female

DRUGS (16)
  1. LEVOFLOXACIN [Suspect]
     Indication: LYMPH NODE ABSCESS
     Route: 048
  2. STEROIDS NOS [Suspect]
     Indication: ASTHMA
     Route: 048
  3. KLARICID [Suspect]
     Indication: ASTHMA
     Route: 048
  4. COTRIM [Suspect]
     Indication: INFECTION PROPHYLAXIS
     Route: 048
  5. DECADRON [Suspect]
     Indication: ASTHMA
     Route: 048
  6. AMARYL [Concomitant]
     Indication: DIABETES MELLITUS
     Route: 048
  7. IPD [Concomitant]
     Indication: ASTHMA
     Route: 048
  8. ITRIZOLE [Concomitant]
     Indication: FUNGAL INFECTION
     Route: 048
  9. DIOVAN [Concomitant]
     Indication: HYPERTENSION
     Route: 048
  10. FOSAMAC [Concomitant]
     Indication: OSTEOPOROSIS
     Route: 048
  11. CLEANAL [Concomitant]
     Indication: BRONCHIAL DISORDER
     Route: 048
  12. BASEN [Concomitant]
     Indication: DIABETES MELLITUS
     Route: 048
  13. THEOPHYLLINE [Concomitant]
     Indication: ASTHMA
     Route: 048
  14. OMEPRAL [Concomitant]
     Indication: PROPHYLAXIS AGAINST GASTROINTESTINAL ULCER
     Route: 048
  15. ONON [Concomitant]
     Route: 048
  16. SPIRIVA [Concomitant]
     Indication: ASTHMA
     Route: 055

REACTIONS (6)
  - ASTHMA [None]
  - HYPERGLYCAEMIA [None]
  - ILEUS PARALYTIC [None]
  - METABOLIC ACIDOSIS [None]
  - PSEUDOMEMBRANOUS COLITIS [None]
  - TREMOR [None]
